FAERS Safety Report 6360811-2 (Version None)
Quarter: 2009Q3

REPORT INFORMATION
  Report Type: 
  Country: None (occurrence: None)
  Receive Date: 20090918
  Receipt Date: 20090909
  Transmission Date: 20100115
  Serious: Yes (Death)
  Sender: FDA-Public Use
  Company Number: DE-ALEXION-A200900721

PATIENT

DRUGS (12)
  1. SOLIRIS [Suspect]
     Indication: ANAEMIA HAEMOLYTIC AUTOIMMUNE
     Dosage: 600 MG, UNK
     Route: 042
     Dates: start: 20090808, end: 20090815
  2. BORTEZOMIB [Concomitant]
     Indication: LYMPHOMA
     Dosage: 1.3 MG/M2, UNK
     Route: 042
     Dates: start: 20090811, end: 20090818
  3. DEXAMETHASONE [Concomitant]
     Indication: LYMPHOMA
     Dosage: 40 MG/M2, UNK
     Route: 042
     Dates: start: 20090811, end: 20090818
  4. ACETYLSALICYLIC ACID [Concomitant]
     Indication: ACUTE MYOCARDIAL INFARCTION
     Dosage: 100 MG, UNK
     Route: 042
     Dates: start: 20090815, end: 20090818
  5. CLOPIDOGREL [Concomitant]
     Indication: ACUTE MYOCARDIAL INFARCTION
     Dosage: 75 MG, UNK
     Route: 042
     Dates: start: 20090815, end: 20090818
  6. HEPARIN [Concomitant]
     Indication: ACUTE MYOCARDIAL INFARCTION
     Dosage: 15000 IU, UNK
     Dates: start: 20090815, end: 20090818
  7. FENTANYL [Concomitant]
     Indication: SEDATION
     Dosage: UNK
     Route: 042
     Dates: start: 20090817, end: 20090818
  8. MIDAZOLAM HCL [Concomitant]
     Indication: SEDATION
     Dosage: UNK
     Route: 042
     Dates: start: 20090817, end: 20090818
  9. MEROPENEM [Concomitant]
     Indication: ANTIBIOTIC THERAPY
     Dosage: 3000 MG, QD
     Route: 042
     Dates: start: 20090812, end: 20090818
  10. VANCOMYCIN [Concomitant]
     Indication: ANTIBIOTIC THERAPY
     Dosage: 1000 MG, QD
     Route: 042
     Dates: start: 20090812, end: 20090818
  11. ACYCLOVIR [Concomitant]
     Indication: ANTIBIOTIC THERAPY
     Dosage: 2250 MG, QD
     Route: 042
     Dates: start: 20090812, end: 20090818
  12. CASPOFUNGIN [Concomitant]
     Indication: ANTIBIOTIC THERAPY
     Dosage: 50 MG, QD
     Route: 042
     Dates: start: 20090812, end: 20090818

REACTIONS (1)
  - CARDIAC FAILURE [None]
